FAERS Safety Report 8798952 (Version 1)
Quarter: 2012Q4

REPORT INFORMATION
  Report Type: 
  Country: BR (occurrence: BR)
  Receive Date: 20120920
  Receipt Date: 20120920
  Transmission Date: 20130627
  Serious: Yes (Other)
  Sender: FDA-Public Use
  Company Number: BR-ASTRAZENECA-2012SE71790

PATIENT
  Age: 61 Year
  Sex: Male
  Weight: 75 kg

DRUGS (5)
  1. NEXIUM [Suspect]
     Indication: OESOPHAGITIS
     Route: 048
     Dates: start: 201204, end: 201208
  2. NEXIUM [Suspect]
     Indication: HIATUS HERNIA
     Route: 048
     Dates: start: 201204, end: 201208
  3. ANCORON [Concomitant]
     Route: 048
  4. CARVEDILOL [Concomitant]
     Route: 048
  5. ALDACTONE [Concomitant]
     Route: 048

REACTIONS (4)
  - Pleural effusion [Recovered/Resolved]
  - Angina pectoris [Not Recovered/Not Resolved]
  - Arrhythmia [Recovered/Resolved]
  - Cardiomegaly [Recovered/Resolved]
